FAERS Safety Report 19409144 (Version 1)
Quarter: 2021Q2

REPORT INFORMATION
  Report Type: Spontaneous
  Country: US (occurrence: US)
  Receive Date: 20210614
  Receipt Date: 20210614
  Transmission Date: 20210717
  Serious: Yes (Death, Other)
  Sender: FDA-Public Use
  Company Number: US-JNJFOC-20210614231

PATIENT

DRUGS (1)
  1. DIPHENHYDRAMINE HYDROCHLORIDE. [Suspect]
     Active Substance: DIPHENHYDRAMINE HYDROCHLORIDE
     Indication: PRODUCT USED FOR UNKNOWN INDICATION
     Route: 048

REACTIONS (11)
  - Coma [Unknown]
  - Tachycardia [Unknown]
  - Arrhythmia [Unknown]
  - Electrocardiogram QT prolonged [Unknown]
  - Seizure [Unknown]
  - Lethargy [Unknown]
  - Completed suicide [Fatal]
  - Death [Fatal]
  - Electrocardiogram QRS complex prolonged [Unknown]
  - Somnolence [Unknown]
  - Agitation [Unknown]
